FAERS Safety Report 14547703 (Version 1)
Quarter: 2018Q1

REPORT INFORMATION
  Report Type: Spontaneous
  Country: GB (occurrence: GB)
  Receive Date: 20180219
  Receipt Date: 20180219
  Transmission Date: 20180509
  Serious: Yes (Hospitalization)
  Sender: FDA-Public Use
  Company Number: PHHY2018GB023097

PATIENT
  Age: 78 Year
  Sex: Male

DRUGS (1)
  1. FOLIC ACID. [Suspect]
     Active Substance: FOLIC ACID
     Indication: PRODUCT USED FOR UNKNOWN INDICATION
     Dosage: 5 MG, UNK
     Route: 048

REACTIONS (9)
  - Aortic aneurysm [Unknown]
  - Hypotension [Unknown]
  - Dizziness [Unknown]
  - Hypoaesthesia [Unknown]
  - Vascular insufficiency [Unknown]
  - Swollen tongue [Unknown]
  - Anaphylactic reaction [Unknown]
  - Swelling face [Unknown]
  - Urticaria [Unknown]
